FAERS Safety Report 6639682-2 (Version None)
Quarter: 2010Q1

REPORT INFORMATION
  Report Type: 
  Country: None (occurrence: None)
  Receive Date: 20100318
  Receipt Date: 20100310
  Transmission Date: 20100710
  Serious: Yes (Other)
  Sender: FDA-Public Use
  Company Number: FR-SANOFI-AVENTIS-2010SA014101

PATIENT
  Age: 62 Year
  Sex: Female

DRUGS (3)
  1. ARAVA [Suspect]
     Indication: PSORIATIC ARTHROPATHY
     Route: 048
     Dates: start: 20100307, end: 20100307
  2. LEVOTHYROX [Concomitant]
     Route: 048
     Dates: start: 20000101
  3. BIPROFENID [Concomitant]
     Route: 048
     Dates: start: 20091001

REACTIONS (3)
  - FATIGUE [None]
  - LOSS OF CONSCIOUSNESS [None]
  - MALAISE [None]
